FAERS Safety Report 4756680-4 (Version None)
Quarter: 2005Q3

REPORT INFORMATION
  Report Type: 
  Country: None (occurrence: None)
  Receive Date: 20050830
  Receipt Date: 20050822
  Transmission Date: 20060218
  Serious: Yes (Hospitalization)
  Sender: FDA-Public Use
  Company Number: SE-GLAXOSMITHKLINE-B0391589A

PATIENT
  Age: 68 Year
  Sex: Male

DRUGS (11)
  1. SEROXAT [Suspect]
     Indication: DRUG USE FOR UNKNOWN INDICATION
     Dosage: 20MG PER DAY
     Route: 048
  2. ASPIRIN [Suspect]
     Indication: MYOCARDIAL INFARCTION
     Dosage: 75MG PER DAY
     Route: 048
  3. PLAVIX [Suspect]
     Indication: MYOCARDIAL INFARCTION
     Dosage: 75MG PER DAY
     Route: 048
  4. NITROMEX [Concomitant]
  5. NOZINAN [Concomitant]
  6. DUROFERON [Concomitant]
  7. NITRAZEPAM [Concomitant]
  8. SOBRIL [Concomitant]
  9. TRIATEC [Concomitant]
  10. NEXIUM [Concomitant]
  11. SELOKEN [Concomitant]

REACTIONS (2)
  - DIARRHOEA HAEMORRHAGIC [None]
  - GASTROINTESTINAL HAEMORRHAGE [None]
